FAERS Safety Report 7035387-7 (Version None)
Quarter: 2010Q4

REPORT INFORMATION
  Report Type: 
  Country: None (occurrence: None)
  Receive Date: 20101008
  Receipt Date: 20100929
  Transmission Date: 20110411
  Serious: Yes (Other)
  Sender: FDA-Public Use
  Company Number: US-JNJFOC-20100507063

PATIENT
  Sex: Female
  Weight: 69.4 kg

DRUGS (2)
  1. STELARA [Suspect]
     Indication: PSORIASIS
     Route: 058
  2. STELARA [Suspect]
     Route: 058

REACTIONS (4)
  - MOLLUSCUM CONTAGIOSUM [None]
  - MYALGIA [None]
  - PYREXIA [None]
  - VIITH NERVE PARALYSIS [None]
